FAERS Safety Report 10331437 (Version 1)
Quarter: 2014Q3

REPORT INFORMATION
  Report Type: Spontaneous
  Country: US (occurrence: None)
  Receive Date: 20140721
  Receipt Date: 20140721
  Transmission Date: 20150326
  Serious: Yes (Hospitalization)
  Sender: FDA-Public Use
  Company Number: None

PATIENT
  Age: 65 Year
  Sex: Female
  Weight: 89.4 kg

DRUGS (18)
  1. PIPERCILLIN/TAZOBACTAM [Suspect]
     Active Substance: PIPERACILLIN SODIUM\TAZOBACTAM SODIUM
     Indication: UROSEPSIS
     Route: 042
     Dates: start: 20140617, end: 20140623
  2. CEFTRIAXONE. [Suspect]
     Active Substance: CEFTRIAXONE
     Indication: UROSEPSIS
     Route: 042
     Dates: start: 20140623, end: 20140630
  3. PEPERCILLIN/TAZOBACTAM [Concomitant]
  4. CEFAZOLIN [Concomitant]
     Active Substance: CEFAZOLIN
  5. TRAZODONE [Concomitant]
     Active Substance: TRAZODONE HYDROCHLORIDE
  6. VENOFER [Concomitant]
     Active Substance: IRON SUCROSE
  7. TESSALON [Concomitant]
     Active Substance: BENZONATATE
  8. TYLENOL [Concomitant]
     Active Substance: ACETAMINOPHEN
  9. ALBUMIN [Concomitant]
     Active Substance: ALBUMIN (HUMAN)
  10. METOPROLOL [Concomitant]
     Active Substance: METOPROLOL
  11. PROCRIT [Concomitant]
     Active Substance: ERYTHROPOIETIN
  12. CEFTRIAXONE. [Concomitant]
     Active Substance: CEFTRIAXONE
  13. HUMALOG [Concomitant]
     Active Substance: INSULIN LISPRO
  14. PHOSIO [Concomitant]
  15. AMPICILLIN AND SULBACTAM [Concomitant]
     Active Substance: AMPICILLIN SODIUM\SULBACTAM SODIUM
  16. PANTOPRAZOLE [Concomitant]
     Active Substance: PANTOPRAZOLE SODIUM
  17. LANTUS [Concomitant]
     Active Substance: INSULIN GLARGINE
  18. LEVOFLOXACIN [Concomitant]
     Active Substance: LEVOFLOXACIN

REACTIONS (4)
  - Klebsiella test positive [None]
  - Clostridium test positive [None]
  - Culture urine positive [None]
  - Blood culture positive [None]

NARRATIVE: CASE EVENT DATE: 20140714
